FAERS Safety Report 12164459 (Version 1)
Quarter: 2016Q1

REPORT INFORMATION
  Report Type: Spontaneous
  Country: US (occurrence: US)
  Receive Date: 20160309
  Receipt Date: 20160309
  Transmission Date: 20160526
  Serious: No
  Sender: FDA-Public Use
  Company Number: US-ROCHE-1658936

PATIENT
  Sex: Female

DRUGS (13)
  1. MONTELUKAST [Concomitant]
     Active Substance: MONTELUKAST SODIUM
     Route: 065
  2. XOLAIR [Suspect]
     Active Substance: OMALIZUMAB
     Indication: PRODUCT USED FOR UNKNOWN INDICATION
     Route: 065
  3. RANITIDINE [Concomitant]
     Active Substance: RANITIDINE\RANITIDINE HYDROCHLORIDE
     Route: 065
  4. NEXIUM [Concomitant]
     Active Substance: ESOMEPRAZOLE MAGNESIUM
     Route: 065
  5. PREDNISONE. [Concomitant]
     Active Substance: PREDNISONE
     Route: 065
  6. OXYCONTIN [Concomitant]
     Active Substance: OXYCODONE HYDROCHLORIDE
     Route: 065
  7. DULOXETINE. [Concomitant]
     Active Substance: DULOXETINE
     Route: 065
  8. EPIPEN [Concomitant]
     Active Substance: EPINEPHRINE
     Route: 065
  9. MELOXICAM. [Concomitant]
     Active Substance: MELOXICAM
     Route: 065
  10. OXYCODONE [Concomitant]
     Active Substance: OXYCODONE
     Route: 065
  11. SIMVASTATIN. [Concomitant]
     Active Substance: SIMVASTATIN
     Route: 065
  12. LEVOCETIRIZINE [Concomitant]
     Active Substance: LEVOCETIRIZINE
  13. LEVOTHYROXIN [Concomitant]
     Active Substance: LEVOTHYROXINE
     Route: 065

REACTIONS (1)
  - Lip swelling [Recovered/Resolved]
